FAERS Safety Report 7012154-1 (Version None)
Quarter: 2010Q3

REPORT INFORMATION
  Report Type: 
  Country: None (occurrence: None)
  Receive Date: 20100924
  Receipt Date: 20100913
  Transmission Date: 20110219
  Serious: Yes (Hospitalization, Other)
  Sender: FDA-Public Use
  Company Number: JP-JNJFOC-20090906238

PATIENT
  Sex: Female
  Weight: 55 kg

DRUGS (7)
  1. REMICADE [Suspect]
     Indication: RHEUMATOID ARTHRITIS
     Dosage: 1 INFUSION
     Route: 042
     Dates: start: 20060407
  2. REMICADE [Suspect]
     Dosage: 1 INFUSION
     Route: 042
     Dates: start: 20060407
  3. REMICADE [Suspect]
     Dosage: 1 INFUSION
     Route: 042
     Dates: start: 20060407
  4. RHEUMATREX [Suspect]
     Indication: RHEUMATOID ARTHRITIS
     Route: 048
  5. GASTER D [Concomitant]
     Route: 048
  6. FOLIAMIN [Concomitant]
     Route: 048
  7. ACTONEL [Concomitant]
     Route: 048

REACTIONS (1)
  - LYMPHOMA [None]
